FAERS Safety Report 10343342 (Version 1)
Quarter: 2014Q3

REPORT INFORMATION
  Report Type: Spontaneous
  Country: US (occurrence: US)
  Receive Date: 20140725
  Receipt Date: 20140725
  Transmission Date: 20150326
  Serious: Yes (Other)
  Sender: FDA-Public Use
  Company Number: US-BAYER-2014-110223

PATIENT
  Age: 38 Year
  Sex: Female

DRUGS (1)
  1. MIRENA [Suspect]
     Active Substance: LEVONORGESTREL
     Indication: CONTRACEPTION
     Dosage: 20 MCG/24HR, CONT
     Route: 015
     Dates: start: 20140514, end: 20140614

REACTIONS (8)
  - Haemoglobin decreased [Recovering/Resolving]
  - Mood swings [Recovering/Resolving]
  - Asthenia [Recovering/Resolving]
  - Abdominal pain lower [Not Recovered/Not Resolved]
  - Suicidal ideation [Recovering/Resolving]
  - Genital haemorrhage [Not Recovered/Not Resolved]
  - Vaginal haemorrhage [Recovered/Resolved]
  - Galactorrhoea [Recovering/Resolving]

NARRATIVE: CASE EVENT DATE: 2014
